FAERS Safety Report 19593084 (Version 1)
Quarter: 2021Q3

REPORT INFORMATION
  Report Type: Spontaneous
  Country: US (occurrence: US)
  Receive Date: 20210722
  Receipt Date: 20210722
  Transmission Date: 20211014
  Serious: Yes (Other)
  Sender: FDA-Public Use
  Company Number: US-TEVA-2021-US-1933735

PATIENT
  Age: 65 Year
  Sex: Female

DRUGS (1)
  1. QVAR REDIHALER [Suspect]
     Active Substance: BECLOMETHASONE DIPROPIONATE
     Indication: RUBBER SENSITIVITY
     Dosage: START DATE: 15 YEARS AGO, DOSE: 40MCG 2 PUFFS TWICE DAILY
     Route: 065

REACTIONS (5)
  - Wrong technique in device usage process [Unknown]
  - Therapy interrupted [Unknown]
  - Blindness [Unknown]
  - Pulmonary embolism [Unknown]
  - Product use in unapproved indication [Unknown]

NARRATIVE: CASE EVENT DATE: 2018
